FAERS Safety Report 4375761-0 (Version None)
Quarter: 2004Q2

REPORT INFORMATION
  Report Type: 
  Country: None (occurrence: None)
  Receive Date: 20040610
  Receipt Date: 20040528
  Transmission Date: 20050107
  Serious: Yes (Other)
  Sender: FDA-Public Use
  Company Number: JP-MERCK-0406USA00373

PATIENT
  Age: 50 Year
  Sex: Male

DRUGS (5)
  1. ZITHROMAX [Suspect]
     Route: 048
  2. PEPCID [Suspect]
     Route: 048
  3. TAKEPRON [Suspect]
     Route: 048
  4. YAMACILLIN [Suspect]
     Route: 048
  5. DIOVAN [Suspect]
     Route: 048

REACTIONS (2)
  - DIARRHOEA [None]
  - HEPATITIS ACUTE [None]
